FAERS Safety Report 9125152 (Version 1)
Quarter: 2013Q1

REPORT INFORMATION
  Report Type: Spontaneous
  Country: GB (occurrence: GB)
  Receive Date: 20130117
  Receipt Date: 20130117
  Transmission Date: 20140127
  Serious: Yes (Hospitalization)
  Sender: FDA-Public Use
  Company Number: GB-ASTRAZENECA-2013SE01626

PATIENT
  Sex: Female

DRUGS (1)
  1. QUETIAPINE FUMARATE [Suspect]
     Route: 048
     Dates: end: 201212

REACTIONS (4)
  - Pain [Unknown]
  - Influenza like illness [Unknown]
  - Loss of consciousness [Unknown]
  - Muscle twitching [Unknown]
